FAERS Safety Report 4644601-4 (Version None)
Quarter: 2005Q2

REPORT INFORMATION
  Report Type: 
  Country: None (occurrence: None)
  Receive Date: 20050425
  Receipt Date: 20050425
  Transmission Date: 20051028
  Serious: No
  Sender: FDA-Public Use
  Company Number: None

PATIENT
  Sex: Female

DRUGS (1)
  1. CLARITIN-D [Suspect]
     Dosage: 1 CAPLET /DAY
     Route: 048
     Dates: start: 20050326, end: 20050331

REACTIONS (1)
  - SOMNOLENCE [None]
